FAERS Safety Report 6232542-0 (Version None)
Quarter: 2009Q2

REPORT INFORMATION
  Report Type: 
  Country: None (occurrence: None)
  Receive Date: 20090617
  Receipt Date: 20090609
  Transmission Date: 20091009
  Serious: No
  Sender: FDA-Public Use
  Company Number: US-ELI_LILLY_AND_COMPANY-US200906002125

PATIENT
  Age: 78 Year
  Sex: Male

DRUGS (2)
  1. CIALIS [Suspect]
     Dosage: 20 MG, UNKNOWN
     Route: 065
     Dates: start: 20050101
  2. CIALIS [Suspect]
     Dosage: 5 MG, DAILY (1/D)
     Route: 065

REACTIONS (2)
  - DIPLOPIA [None]
  - WRONG TECHNIQUE IN DRUG USAGE PROCESS [None]
